FAERS Safety Report 4558676-4 (Version None)
Quarter: 2005Q1

REPORT INFORMATION
  Report Type: 
  Country: None (occurrence: None)
  Receive Date: 20050119
  Receipt Date: 20050107
  Transmission Date: 20050727
  Serious: No
  Sender: FDA-Public Use
  Company Number: 2005-BP-00359BP

PATIENT
  Age: 73 Year
  Sex: Male

DRUGS (2)
  1. FLOMAX [Suspect]
     Indication: BENIGN PROSTATIC HYPERPLASIA
     Dosage: 0.4 MG (0.4 MG, 1 CAPSULE DAILY), PO
     Route: 048
     Dates: end: 20050103
  2. AVAPRO [Concomitant]

REACTIONS (4)
  - CATARACT [None]
  - DISEASE PROGRESSION [None]
  - INTRAOCULAR PRESSURE INCREASED [None]
  - IRIS DISORDER [None]
